FAERS Safety Report 4693652-2 (Version None)
Quarter: 2005Q2

REPORT INFORMATION
  Report Type: 
  Country: None (occurrence: None)
  Receive Date: 20050617
  Receipt Date: 20050425
  Transmission Date: 20051028
  Serious: Yes (Other)
  Sender: FDA-Public Use
  Company Number: 2005UW06450

PATIENT
  Sex: Female

DRUGS (7)
  1. LOSEC [Suspect]
     Indication: DYSPEPSIA
     Route: 048
  2. LOSEC [Suspect]
     Indication: ABDOMINAL PAIN UPPER
     Route: 048
  3. LOSEC [Suspect]
     Route: 048
     Dates: start: 20050423
  4. LOSEC [Suspect]
     Route: 048
     Dates: start: 20050423
  5. FLUCONAZOLE [Concomitant]
     Indication: FUNGAL INFECTION
     Route: 048
  6. NYSTATIN [Concomitant]
     Indication: FUNGAL INFECTION
     Route: 048
  7. PREDNISONE TAB [Concomitant]
     Indication: CHRONIC OBSTRUCTIVE PULMONARY DISEASE

REACTIONS (2)
  - HAEMATOCHEZIA [None]
  - INTESTINAL HAEMORRHAGE [None]
